FAERS Safety Report 7557669-2 (Version None)
Quarter: 2011Q2

REPORT INFORMATION
  Report Type: 
  Country: None (occurrence: None)
  Receive Date: 20110620
  Receipt Date: 20110613
  Transmission Date: 20111010
  Serious: Yes (Other)
  Sender: FDA-Public Use
  Company Number: JP-ROCHE-783106

PATIENT
  Sex: Female

DRUGS (13)
  1. TOCILIZUMAB [Suspect]
     Route: 041
     Dates: start: 20100203, end: 20110201
  2. FOLIC ACID [Concomitant]
     Dosage: DOSE FORM: PERORAL AGENT
     Route: 048
     Dates: start: 20081213
  3. TOCILIZUMAB [Suspect]
     Route: 041
     Dates: start: 20090615, end: 20090615
  4. TOCILIZUMAB [Suspect]
     Route: 041
     Dates: start: 20090811, end: 20091201
  5. RHEUMATREX [Suspect]
     Indication: RHEUMATOID ARTHRITIS
     Route: 048
     Dates: start: 20081213, end: 20101221
  6. TOCILIZUMAB [Suspect]
     Indication: RHEUMATOID ARTHRITIS
     Route: 041
     Dates: start: 20090212, end: 20090413
  7. PREDNISOLONE [Concomitant]
     Dosage: DOSE FORM: PERORAL AGENT
     Route: 048
     Dates: end: 20110105
  8. PREDNISOLONE [Concomitant]
     Route: 048
     Dates: start: 20110207
  9. TOCILIZUMAB [Suspect]
     Route: 041
     Dates: start: 20090713, end: 20090713
  10. TOCILIZUMAB [Suspect]
     Route: 041
     Dates: start: 20100106, end: 20100106
  11. TOCILIZUMAB [Suspect]
     Route: 041
     Dates: start: 20090518, end: 20090518
  12. ETODOLAC [Concomitant]
     Dosage: DRUG: RAIPECK(ETODOLAC)
     Route: 048
     Dates: start: 20080124
  13. ISONIAZID [Concomitant]
     Dosage: DOSE FORM: PERORAL AGENT
     Route: 048
     Dates: start: 20080823

REACTIONS (1)
  - CELL MARKER INCREASED [None]
